FAERS Safety Report 7635762-3 (Version None)
Quarter: 2011Q3

REPORT INFORMATION
  Report Type: 
  Country: None (occurrence: None)
  Receive Date: 20110726
  Receipt Date: 20110720
  Transmission Date: 20111222
  Serious: Yes (Other)
  Sender: FDA-Public Use
  Company Number: US-PFIZER INC-2011167045

PATIENT
  Sex: Female

DRUGS (1)
  1. TORISEL [Suspect]

REACTIONS (1)
  - HYPOACUSIS [None]
